FAERS Safety Report 8578683-4 (Version None)
Quarter: 2012Q3

REPORT INFORMATION
  Report Type: 
  Country: None (occurrence: None)
  Receive Date: 20120808
  Receipt Date: 20120806
  Transmission Date: 20120928
  Serious: Yes (Other)
  Sender: FDA-Public Use
  Company Number: PHFR2012GB004337

PATIENT
  Sex: Male

DRUGS (1)
  1. CLOZARIL [Suspect]
     Indication: SCHIZOPHRENIA
     Route: 048
     Dates: start: 20110310

REACTIONS (4)
  - SKIN ULCER [None]
  - WHITE BLOOD CELL COUNT INCREASED [None]
  - MALAISE [None]
  - NEUTROPHIL COUNT INCREASED [None]
